FAERS Safety Report 5479760-7 (Version None)
Quarter: 2007Q4

REPORT INFORMATION
  Report Type: 
  Country: None (occurrence: None)
  Receive Date: 20071008
  Receipt Date: 20070928
  Transmission Date: 20080405
  Serious: Yes (Other)
  Sender: FDA-Public Use
  Company Number: US-SHR-US-2007-006378

PATIENT
  Age: 43 Year
  Sex: Male

DRUGS (42)
  1. MAGNEVIST [Suspect]
     Indication: NUCLEAR MAGNETIC RESONANCE IMAGING
     Dosage: 20 ML, 1 DOSE
     Route: 042
     Dates: start: 20011227, end: 20011227
  2. MAGNEVIST [Suspect]
     Dosage: 60 ML, 1 DOSE
     Route: 042
     Dates: start: 20020505, end: 20020505
  3. MAGNEVIST [Suspect]
     Dosage: 20 ML, 1 DOSE
     Route: 042
     Dates: start: 20021111, end: 20021111
  4. MAGNEVIST [Suspect]
     Dosage: 20 ML, 1 DOSE
     Route: 042
     Dates: start: 20030827, end: 20030827
  5. MAGNEVIST [Suspect]
     Dosage: 20 ML, 1 DOSE
     Route: 042
     Dates: start: 20030828, end: 20030828
  6. MAGNEVIST [Suspect]
     Dosage: 20 ML, 1 DOSE
     Route: 042
     Dates: start: 20030917, end: 20030917
  7. MAGNEVIST [Suspect]
     Dosage: 20 ML, 1 DOSE
     Route: 042
     Dates: start: 20030918, end: 20030918
  8. MAGNEVIST [Suspect]
     Dosage: 20 ML, 1 DOSE
     Route: 042
     Dates: start: 20050801, end: 20050801
  9. MAGNEVIST [Suspect]
     Dosage: 60 ML, 1 DOSE
     Route: 042
     Dates: start: 20060427, end: 20060427
  10. MAGNEVIST [Suspect]
     Dosage: 20 ML, 1 DOSE
     Route: 042
     Dates: start: 20060608, end: 20060608
  11. MAGNEVIST [Suspect]
     Route: 042
     Dates: start: 20000426, end: 20000426
  12. MAGNEVIST [Suspect]
     Dates: start: 20020519, end: 20020519
  13. PHOSLO [Concomitant]
     Dosage: 2001 MG, 4X/DAY
     Route: 048
  14. RENAGEL [Concomitant]
     Dosage: 3200 MG, 4X/DAY
     Route: 048
  15. RENAGEL [Concomitant]
     Dosage: 3200 MG, 3X/DAY
  16. LIPITOR [Concomitant]
     Dosage: 80 MG, 1X/DAY
     Route: 048
  17. CELEXA [Concomitant]
     Dosage: 20 MG, 1X/DAY
     Route: 048
  18. BENADRYL ^PFIZER WARNER-LAMBERT^ [Concomitant]
     Indication: PRURITUS
     Dosage: 25 MG, AS REQ'D
     Route: 048
  19. NEURONTIN [Concomitant]
     Dosage: 300 MG AFTER HD ON HD DAYS ONLY
     Route: 048
  20. NEURONTIN [Concomitant]
     Dosage: 600 MG, AFTER EACH DIALYSIS
  21. GEMFIBROZIL [Concomitant]
     Dosage: 600 MG, 2X/DAY
  22. INSULIN GLARGINE [Concomitant]
     Dosage: 6 UNITS QHS
     Route: 058
  23. INSULIN GLARGINE [Concomitant]
     Dosage: 15 UNK, BED T.
     Route: 058
  24. ATIVAN [Concomitant]
     Dosage: 1 MG BEFORE DIALYSIS PRN
     Route: 048
  25. METHADONE HCL [Concomitant]
     Indication: PAIN
     Dosage: 5 MG, 2X/DAY
     Route: 048
  26. TOPROL-XL [Concomitant]
     Dosage: 100 MG, 2X/DAY
     Route: 048
  27. NEPHROCAPS [Concomitant]
     Dosage: 1 CAP(S), 1X/DAY
     Route: 048
  28. PERCOCET [Concomitant]
     Dosage: 1 TAB(S), Q6H PRN
     Route: 048
  29. RANITIDINE HCL [Concomitant]
     Dosage: 150 MG, 1X/DAY
     Route: 048
  30. REQUIP [Concomitant]
     Dosage: 2 MG, 2X/DAY
     Route: 048
  31. COUMADIN [Concomitant]
     Dosage: 4 MG, QPM
     Route: 048
  32. COUMADIN [Concomitant]
     Dosage: 5 MG, 3X/WEEK
     Route: 048
  33. COUMADIN [Concomitant]
     Dosage: 7.5 MG, 4X/WEEK
     Route: 048
  34. LISINOPRIL [Concomitant]
     Dosage: 40 MG, 1X/DAY
     Route: 048
  35. LISINOPRIL [Concomitant]
     Dosage: 5 MG, 1X/DAY
  36. REGULAR INSULIN [Concomitant]
     Dosage: SLIDING SCALE AC AND HS
     Route: 058
  37. CLONIDINE [Concomitant]
     Dosage: .2 MG, 1X/DAY
     Route: 062
  38. ULTRAVIST 300 [Concomitant]
     Indication: FISTULOGRAM
     Dosage: 120 ML, 1 DOSE
     Dates: start: 20070309, end: 20070309
  39. OXYCODONE HCL [Concomitant]
     Dosage: 10 MG, Q4H PRN
  40. OXYCODONE HCL [Concomitant]
     Dosage: 40 MG, EVERY 8H
     Route: 048
  41. QUININE SULFATE [Concomitant]
     Dosage: 325 MG, QHS PRN
  42. LANTUS [Concomitant]
     Dosage: 15 UNITS QHS
     Route: 058

REACTIONS (1)
  - NEPHROGENIC SYSTEMIC FIBROSIS [None]
